FAERS Safety Report 9882571 (Version 1)
Quarter: 2014Q1

REPORT INFORMATION
  Report Type: Spontaneous
  Country: SE (occurrence: SE)
  Receive Date: 20140207
  Receipt Date: 20140207
  Transmission Date: 20141002
  Serious: Yes (Hospitalization)
  Sender: FDA-Public Use
  Company Number: SE-WATSON-2014-01871

PATIENT
  Age: 65 Year
  Sex: Male

DRUGS (2)
  1. ANTABUS [Suspect]
     Indication: PRODUCT USED FOR UNKNOWN INDICATION
     Dosage: UNK; 2 TIMES A WEEK
     Route: 048
     Dates: start: 20130807, end: 20130917
  2. LOSARTAN [Concomitant]
     Indication: PRODUCT USED FOR UNKNOWN INDICATION
     Dosage: UNK; DAILY
     Route: 065

REACTIONS (1)
  - Jaundice [Unknown]
